FAERS Safety Report 6352974-X (Version None)
Quarter: 2009Q3

REPORT INFORMATION
  Report Type: 
  Country: None (occurrence: None)
  Receive Date: 20090912
  Receipt Date: 20090622
  Transmission Date: 20100115
  Serious: No
  Sender: FDA-Public Use
  Company Number: US-ABBOTT-08P-163-0451189-00

PATIENT
  Sex: Female
  Weight: 77.18 kg

DRUGS (8)
  1. HUMIRA [Suspect]
     Indication: ARTHRITIS
     Route: 058
     Dates: start: 20080508
  2. MESALAZINE [Concomitant]
     Indication: CROHN'S DISEASE
     Dosage: TAKE FOUR PILLS TWICE DAILY
     Route: 048
     Dates: start: 20060101
  3. OMEPRAZOLE [Concomitant]
     Indication: GASTROOESOPHAGEAL REFLUX DISEASE
     Route: 048
     Dates: start: 20060101
  4. MEDROXYPROGESTERONE [Concomitant]
     Indication: HYSTERECTOMY
     Route: 050
     Dates: start: 20060101
  5. ESTRADIOL [Concomitant]
     Indication: HYSTERECTOMY
     Dosage: EVERY MONDAY AND TUESDAY
     Route: 061
     Dates: start: 20060101
  6. LORAZEPAM [Concomitant]
     Indication: SLEEP DISORDER THERAPY
     Dosage: AT BEDTIME
     Route: 048
  7. NAPROXEN [Concomitant]
     Indication: PAIN
     Route: 048
  8. ONDANSETRON [Concomitant]
     Indication: NAUSEA
     Route: 048

REACTIONS (2)
  - INCORRECT DOSE ADMINISTERED [None]
  - INJECTION SITE EXTRAVASATION [None]
